FAERS Safety Report 8791712 (Version 3)
Quarter: 2012Q4

REPORT INFORMATION
  Report Type: Report from Study
  Country: FR (occurrence: FR)
  Receive Date: 20120918
  Receipt Date: 20121028
  Transmission Date: 20130627
  Serious: Yes (Death, Hospitalization)
  Sender: FDA-Public Use
  Company Number: FR-CELGENEUS-056-50794-12090842

PATIENT
  Age: 83 Year
  Sex: Male

DRUGS (5)
  1. VIDAZA [Suspect]
     Indication: MYELODYSPLASTIC SYNDROME
     Dosage: 75 milligram/sq. meter
     Route: 058
     Dates: start: 20120111, end: 20120803
  2. KARDEGIC [Concomitant]
     Indication: PROPHYLAXIS
     Route: 048
     Dates: end: 20120819
  3. ATACAND [Concomitant]
     Indication: HYPERTENSION
     Route: 048
     Dates: end: 20120819
  4. ISOPTINE [Concomitant]
     Indication: HYPERTENSION
     Route: 048
     Dates: end: 20120819
  5. METFORMIN [Concomitant]
     Indication: HYPERTENSION
     Route: 048
     Dates: end: 20120819

REACTIONS (1)
  - Febrile neutropenia [Fatal]
